FAERS Safety Report 7439844-0 (Version None)
Quarter: 2011Q2

REPORT INFORMATION
  Report Type: 
  Country: None (occurrence: None)
  Receive Date: 20110427
  Receipt Date: 20100712
  Transmission Date: 20111010
  Serious: No
  Sender: FDA-Public Use
  Company Number: US-MYLANLABS-2010S1012525

PATIENT
  Age: 65 Year
  Sex: Female

DRUGS (3)
  1. DILTIAZEM HCL [Suspect]
     Indication: BLOOD PRESSURE INCREASED
     Route: 048
     Dates: start: 20100630, end: 20100710
  2. PRAVASTATIN [Concomitant]
  3. DIOVAN [Concomitant]

REACTIONS (5)
  - HEADACHE [None]
  - RASH [None]
  - ORAL HERPES [None]
  - COUGH [None]
  - THROAT IRRITATION [None]
